FAERS Safety Report 8829453 (Version 1)
Quarter: 2012Q4

REPORT INFORMATION
  Report Type: 
  Country: US (occurrence: None)
  Receive Date: 20121005
  Receipt Date: 20121005
  Transmission Date: 20130627
  Serious: Yes (Hospitalization)
  Sender: FDA-Public Use
  Company Number: None

PATIENT
  Sex: Male
  Weight: 73.3 kg

DRUGS (3)
  1. BENDAMUSTINE HYDROCHLORIDE [Suspect]
  2. BORTEZOMIB [Suspect]
  3. RITUXIMAB [Suspect]

REACTIONS (2)
  - Basal cell carcinoma [None]
  - Squamous cell carcinoma of skin [None]
